FAERS Safety Report 13762398 (Version 1)
Quarter: 2017Q3

REPORT INFORMATION
  Report Type: Spontaneous
  Country: US (occurrence: US)
  Receive Date: 20170717
  Receipt Date: 20170717
  Transmission Date: 20171127
  Serious: Yes (Disabling)
  Sender: FDA-Public Use
  Company Number: None

PATIENT
  Age: 65 Year
  Sex: Male
  Weight: 112.5 kg

DRUGS (9)
  1. FISH OIL [Concomitant]
     Active Substance: FISH OIL
  2. BENAZEPRIL [Concomitant]
     Active Substance: BENAZEPRIL HYDROCHLORIDE
  3. BACLOFEN. [Concomitant]
     Active Substance: BACLOFEN
  4. METOPROLOL. [Concomitant]
     Active Substance: METOPROLOL
  5. DICLOFENAC [Concomitant]
     Active Substance: DICLOFENAC
  6. ASPRIN [Concomitant]
     Active Substance: ASPIRIN
  7. ROSUVASTATIN. [Suspect]
     Active Substance: ROSUVASTATIN
     Indication: BLOOD CHOLESTEROL INCREASED
     Dosage: ?          OTHER STRENGTH:MG;?
     Route: 048
     Dates: start: 20170425, end: 20170524
  8. AMLODIPINE [Concomitant]
     Active Substance: AMLODIPINE BESYLATE
  9. ALLOPURINOL. [Concomitant]
     Active Substance: ALLOPURINOL

REACTIONS (6)
  - Asthenia [None]
  - Gait inability [None]
  - Balance disorder [None]
  - Mental impairment [None]
  - Memory impairment [None]
  - Myalgia [None]

NARRATIVE: CASE EVENT DATE: 20170510
